FAERS Safety Report 5276502-5 (Version None)
Quarter: 2007Q1

REPORT INFORMATION
  Report Type: 
  Country: None (occurrence: None)
  Receive Date: 20061213
  Receipt Date: 20030829
  Transmission Date: 20070707
  Serious: No
  Sender: FDA-Public Use
  Company Number: 2003UW11024

PATIENT
  Age: 95 Year
  Sex: Male
  Weight: 56.6996 kg

DRUGS (7)
  1. SEROQUEL [Suspect]
     Dosage: 25 MG DAILY PO
     Route: 048
  2. PREVACID [Concomitant]
  3. IMDUR [Concomitant]
  4. PEPTO-BISMOL [Concomitant]
  5. ZANTAC [Concomitant]
  6. PEPCID [Concomitant]
  7. DARVOCET-N 100 [Concomitant]

REACTIONS (2)
  - AGITATION [None]
  - INSOMNIA [None]
